FAERS Safety Report 7011815-8 (Version None)
Quarter: 2010Q3

REPORT INFORMATION
  Report Type: 
  Country: None (occurrence: None)
  Receive Date: 20100923
  Receipt Date: 20090831
  Transmission Date: 20110219
  Serious: No
  Sender: FDA-Public Use
  Company Number: US-WYE-H10789309

PATIENT
  Age: 51 Year
  Sex: Female

DRUGS (3)
  1. PREMARIN [Suspect]
     Indication: MOOD SWINGS
     Route: 067
     Dates: start: 20090819, end: 20090902
  2. PREMARIN [Suspect]
     Indication: VULVOVAGINAL DRYNESS
     Route: 067
     Dates: start: 20090903
  3. LORATADINE [Concomitant]

REACTIONS (1)
  - NIGHTMARE [None]
